FAERS Safety Report 14244683 (Version 1)
Quarter: 2017Q4

REPORT INFORMATION
  Report Type: Spontaneous
  Country: CA (occurrence: CA)
  Receive Date: 20171201
  Receipt Date: 20171201
  Transmission Date: 20180321
  Serious: Yes (Life-Threatening, Hospitalization)
  Sender: FDA-Public Use
  Company Number: CA-ELI_LILLY_AND_COMPANY-CA201711010490

PATIENT
  Sex: Female

DRUGS (2)
  1. HUMULIN R [Suspect]
     Active Substance: INSULIN HUMAN
     Indication: PRODUCT USED FOR UNKNOWN INDICATION
     Dosage: UNK, UNKNOWN
     Dates: start: 2005
  2. HUMULIN R [Suspect]
     Active Substance: INSULIN HUMAN
     Indication: PRODUCT USED FOR UNKNOWN INDICATION
     Dosage: UNK, UNKNOWN
     Route: 065

REACTIONS (14)
  - Accidental overdose [Unknown]
  - Cerebrovascular accident [Unknown]
  - Intervertebral disc protrusion [Not Recovered/Not Resolved]
  - Pain [Unknown]
  - Intestinal obstruction [Unknown]
  - Herpes zoster [Recovered/Resolved]
  - Blood glucose increased [Unknown]
  - Wrong technique in product usage process [Unknown]
  - Blood glucose increased [Recovered/Resolved]
  - Cardiac arrest [Unknown]
  - Arthritis [Not Recovered/Not Resolved]
  - Multiple fractures [Unknown]
  - Sleep apnoea syndrome [Unknown]
  - Accidental underdose [Unknown]

NARRATIVE: CASE EVENT DATE: 2013
